FAERS Safety Report 5329405-1 (Version None)
Quarter: 2007Q2

REPORT INFORMATION
  Report Type: 
  Country: None (occurrence: None)
  Receive Date: 20070223
  Receipt Date: 20060808
  Transmission Date: 20071010
  Serious: Yes (Other)
  Sender: FDA-Public Use
  Company Number: WAES 0512USA03169

PATIENT
  Sex: Female

DRUGS (15)
  1. ZOCOR [Suspect]
     Dosage: 60 MG/PO
     Route: 048
  2. AMBIEN [Concomitant]
  3. CELLCEPT [Concomitant]
  4. COZAAR [Concomitant]
  5. NEORAL [Concomitant]
  6. PRILOSEC [Concomitant]
  7. ZOFRAN [Concomitant]
  8. ZOLOFT [Concomitant]
  9. ASCORBIC ACID [Concomitant]
  10. CALCIUM (UNSPECIFIED) [Concomitant]
  11. CYCLOSPORINE [Concomitant]
  12. OMEGA-3 MARINE TRIGLYCERIDES [Concomitant]
  13. PREDNISONE TAB [Concomitant]
  14. VITAMIN E [Concomitant]
  15. MULTI-VITAMINS [Concomitant]

REACTIONS (18)
  - ABDOMINAL DISTENSION [None]
  - ABDOMINAL PAIN LOWER [None]
  - ANAEMIA [None]
  - ASTHENIA [None]
  - CONSTIPATION [None]
  - DIARRHOEA [None]
  - DIZZINESS POSTURAL [None]
  - EATING DISORDER [None]
  - ERUCTATION [None]
  - HOT FLUSH [None]
  - MUCOUS STOOLS [None]
  - NASOPHARYNGITIS [None]
  - NAUSEA [None]
  - RHABDOMYOLYSIS [None]
  - SKIN WRINKLING [None]
  - SOMNOLENCE [None]
  - URINARY INCONTINENCE [None]
  - VOMITING [None]
